FAERS Safety Report 13742380 (Version 1)
Quarter: 2017Q3

REPORT INFORMATION
  Report Type: Spontaneous
  Country: CN (occurrence: CN)
  Receive Date: 20170711
  Receipt Date: 20170711
  Transmission Date: 20171127
  Serious: Yes (Other)
  Sender: FDA-Public Use
  Company Number: CN-BAYER-2017-128773

PATIENT

DRUGS (3)
  1. STIVARGA [Suspect]
     Active Substance: REGORAFENIB
     Indication: COLORECTAL CANCER
     Dosage: 160 MG, UNK
     Route: 048
     Dates: start: 20120904, end: 20121222
  2. OXALIPLATIN. [Concomitant]
     Active Substance: OXALIPLATIN
     Dosage: SCORE WAS 1
  3. TEGAFUR [Concomitant]
     Active Substance: TEGAFUR
     Dosage: 5 CYCLES

REACTIONS (1)
  - Colorectal cancer [None]

NARRATIVE: CASE EVENT DATE: 20121222
